FAERS Safety Report 8826367 (Version 1)
Quarter: 2012Q4

REPORT INFORMATION
  Report Type: 
  Country: AU (occurrence: AU)
  Receive Date: 20121008
  Receipt Date: 20121008
  Transmission Date: 20130627
  Serious: Yes (Hospitalization)
  Sender: FDA-Public Use
  Company Number: PHHY2012AU088046

PATIENT
  Age: 21 Year
  Sex: Male

DRUGS (2)
  1. CLOZARIL [Suspect]
     Dosage: 12.5 mg
     Route: 048
     Dates: start: 20120413
  2. CLOZARIL [Suspect]
     Route: 048
     Dates: start: 20120929

REACTIONS (1)
  - Psychotic disorder [Unknown]
